FAERS Safety Report 25234198 (Version 2)
Quarter: 2025Q2

REPORT INFORMATION
  Report Type: Spontaneous
  Country: ES (occurrence: ES)
  Receive Date: 20250424
  Receipt Date: 20250602
  Transmission Date: 20250717
  Serious: Yes (Other)
  Sender: ALEXION PHARMACEUTICALS
  Company Number: ES-AstraZeneca-CH-00853172AMP

PATIENT

DRUGS (1)
  1. PULMICORT TURBUHALER [Suspect]
     Active Substance: BUDESONIDE
     Dosage: 400 MICROGRAM, Q8H

REACTIONS (4)
  - Pneumonia [Unknown]
  - Malaise [Unknown]
  - Product use issue [Unknown]
  - Drug ineffective [Unknown]
